FAERS Safety Report 13622331 (Version 1)
Quarter: 2017Q2

REPORT INFORMATION
  Report Type: Spontaneous
  Country: US (occurrence: US)
  Receive Date: 20170607
  Receipt Date: 20170607
  Transmission Date: 20170830
  Serious: No
  Sender: FDA-Public Use
  Company Number: US-ROCHE-1911095

PATIENT
  Sex: Female
  Weight: 42.22 kg

DRUGS (1)
  1. XELODA [Suspect]
     Active Substance: CAPECITABINE
     Indication: NEOPLASM MALIGNANT
     Dosage: 1000 MG MORNING AND 500 MG IN EVENING
     Route: 048
     Dates: start: 20160418

REACTIONS (1)
  - Gastric disorder [Not Recovered/Not Resolved]
